FAERS Safety Report 8603360-0 (Version None)
Quarter: 2012Q3

REPORT INFORMATION
  Report Type: 
  Country: None (occurrence: None)
  Receive Date: 20120817
  Receipt Date: 20120809
  Transmission Date: 20120928
  Serious: Yes (Hospitalization)
  Sender: FDA-Public Use
  Company Number: GB-ABBOTT-12P-167-0964086-00

PATIENT
  Age: 76 Year
  Sex: Female
  Weight: 73.1 kg

DRUGS (6)
  1. EPROSARTAN MESYLATE [Suspect]
     Indication: ESSENTIAL HYPERTENSION
     Dosage: 2 TABS
     Route: 048
     Dates: start: 20100723, end: 20120101
  2. ATENOLOL [Concomitant]
     Indication: BLOOD PRESSURE INCREASED
     Dates: start: 19990101
  3. SIMVASTATIN [Concomitant]
     Indication: BLOOD CHOLESTEROL INCREASED
     Dates: start: 20090101
  4. ACETAMINOPHEN [Concomitant]
     Indication: ARTHRALGIA
  5. LANSOPRAZOLE [Concomitant]
     Indication: HIATUS HERNIA
     Dates: start: 20080303
  6. ACETAMINOPHEN [Concomitant]
     Indication: OSTEOARTHRITIS
     Dates: start: 20050101

REACTIONS (1)
  - PULMONARY EMBOLISM [None]
